FAERS Safety Report 13570793 (Version 10)
Quarter: 2022Q2

REPORT INFORMATION
  Report Type: Report from Study
  Country: US (occurrence: None)
  Receive Date: 20170523
  Receipt Date: 20220421
  Transmission Date: 20220721
  Serious: Yes (Hospitalization)
  Sender: FDA-Public Use
  Company Number: US-ROCHE-1934739

PATIENT
  Age: 74 Year
  Sex: Female
  Weight: 76.6 kg

DRUGS (44)
  1. VENETOCLAX [Suspect]
     Active Substance: VENETOCLAX
     Indication: Diffuse large B-cell lymphoma
     Dosage: ADMINISTERED DAYS 1-10 OF EACH 21-DAY CYCLE, WITH THE EXCEPTION OF CYCLE 1, DURING WHICH VENETOCLAX
     Route: 048
     Dates: start: 20170504
  2. VENETOCLAX [Suspect]
     Active Substance: VENETOCLAX
     Dosage: CYCLE 4 DAY 1: 24/JUL/2017
     Route: 048
     Dates: start: 20170605
  3. VENETOCLAX [Suspect]
     Active Substance: VENETOCLAX
     Dosage: CYCLE 6
     Route: 048
     Dates: start: 201709
  4. RITUXIMAB [Suspect]
     Active Substance: RITUXIMAB
     Indication: Diffuse large B-cell lymphoma
     Route: 042
     Dates: start: 20170428
  5. RITUXIMAB [Suspect]
     Active Substance: RITUXIMAB
     Dosage: CYCLE 4 DAY 1: 24/JUL/2017, SEP/2017 CYCLE6
     Route: 042
     Dates: start: 20170605
  6. ETOPOSIDE [Suspect]
     Active Substance: ETOPOSIDE
     Indication: Diffuse large B-cell lymphoma
     Dosage: GIVEN FOR 6 CYCLES
     Route: 042
     Dates: start: 20170428
  7. ETOPOSIDE [Suspect]
     Active Substance: ETOPOSIDE
     Dosage: CYCLE 4 DAY 1: 24/JUL/2017, SEP/2017 CYCLE6
     Route: 042
     Dates: start: 20170605
  8. CYCLOPHOSPHAMIDE [Suspect]
     Active Substance: CYCLOPHOSPHAMIDE
     Indication: Diffuse large B-cell lymphoma
     Dosage: GIVEN FOR 6 CYCLES
     Route: 042
     Dates: start: 20170428
  9. CYCLOPHOSPHAMIDE [Suspect]
     Active Substance: CYCLOPHOSPHAMIDE
     Dosage: CYCLE 4 DAY 1: 24/JUL/2017,SEP/2017 CYCLE6
     Route: 042
     Dates: start: 20170605
  10. PREDNISONE [Suspect]
     Active Substance: PREDNISONE
     Indication: Diffuse large B-cell lymphoma
     Dosage: GIVEN FOR 6 CYCLES
     Route: 048
     Dates: start: 20170428
  11. PREDNISONE [Suspect]
     Active Substance: PREDNISONE
     Dosage: CYCLE 4 DAY 1: 24/JUL/2017, SEP/2017 CYCLE6
     Route: 048
     Dates: start: 20170605
  12. DOXORUBICIN HYDROCHLORIDE [Suspect]
     Active Substance: DOXORUBICIN HYDROCHLORIDE
     Indication: Diffuse large B-cell lymphoma
     Dosage: GIVEN FOR 6 CYCLES
     Route: 042
     Dates: start: 20170428
  13. DOXORUBICIN HYDROCHLORIDE [Suspect]
     Active Substance: DOXORUBICIN HYDROCHLORIDE
     Dosage: CYCLE 4 DAY 1: 24/JUL/2017, SEP/2017 CYCLE6
     Route: 042
     Dates: start: 20170605
  14. VINCRISTINE [Suspect]
     Active Substance: VINCRISTINE
     Indication: Diffuse large B-cell lymphoma
     Dosage: GIVEN FOR 6 CYCLES
     Route: 042
     Dates: start: 20170428
  15. VINCRISTINE [Suspect]
     Active Substance: VINCRISTINE
     Dosage: CYCLE 4 DAY 1: 24/JUL/2017, SEP/2017 CYCLE6
     Route: 042
     Dates: start: 20170605
  16. BACTRIM [Concomitant]
     Active Substance: SULFAMETHOXAZOLE\TRIMETHOPRIM
     Dosage: 400 MG-80 MG PER TABLET
     Route: 048
     Dates: start: 20170427
  17. VITAMIN D3 [Concomitant]
     Active Substance: CHOLECALCIFEROL
     Dosage: 2000 UNITS
     Route: 048
  18. COLACE [Concomitant]
     Active Substance: DOCUSATE SODIUM
     Route: 048
  19. OSTEO BI-FLEX TRIPLE STRENGTH WITH VITAMIN D [Concomitant]
     Route: 048
  20. LISINOPRIL [Concomitant]
     Active Substance: LISINOPRIL
     Indication: Hypertension
     Dosage: PRINIVIL/ZESTRIL
     Dates: start: 20160706
  21. FISH OIL [Concomitant]
     Active Substance: FISH OIL
     Route: 048
  22. PROTONIX [Concomitant]
     Active Substance: PANTOPRAZOLE SODIUM
     Route: 048
  23. PROTONIX [Concomitant]
     Active Substance: PANTOPRAZOLE SODIUM
     Route: 048
     Dates: start: 20170427
  24. ZOCOR [Concomitant]
     Active Substance: SIMVASTATIN
     Indication: Hyperlipidaemia
     Route: 048
     Dates: start: 20160705
  25. MINERALS\VITAMINS [Concomitant]
     Active Substance: MINERALS\VITAMINS
     Route: 048
  26. ZOFRAN [Concomitant]
     Active Substance: ONDANSETRON HYDROCHLORIDE
     Indication: Nausea
     Route: 048
     Dates: start: 20170427
  27. ZOFRAN [Concomitant]
     Active Substance: ONDANSETRON HYDROCHLORIDE
     Indication: Vomiting
  28. VALTREX [Concomitant]
     Active Substance: VALACYCLOVIR HYDROCHLORIDE
     Route: 048
     Dates: start: 20170427
  29. MIRALAX [Concomitant]
     Active Substance: POLYETHYLENE GLYCOL 3350
     Indication: Constipation
  30. LASIX [Concomitant]
     Active Substance: FUROSEMIDE
     Indication: Abdominal distension
     Route: 042
     Dates: start: 20170430, end: 20170430
  31. LASIX [Concomitant]
     Active Substance: FUROSEMIDE
     Indication: Oedema peripheral
  32. LASIX [Concomitant]
     Active Substance: FUROSEMIDE
     Route: 048
  33. DEMEROL [Concomitant]
     Active Substance: MEPERIDINE HYDROCHLORIDE
     Indication: Infusion related reaction
     Dates: start: 20170428, end: 20170428
  34. SENOKOT [Concomitant]
     Active Substance: SENNOSIDES
     Indication: Constipation
  35. COMPAZINE [Concomitant]
     Active Substance: PROCHLORPERAZINE MALEATE
     Indication: Nausea
  36. TYLENOL [Concomitant]
     Active Substance: ACETAMINOPHEN
     Route: 048
  37. ZOSYN [Concomitant]
     Active Substance: PIPERACILLIN SODIUM\TAZOBACTAM SODIUM
     Dosage: IN SODIUM CHLORIDE, 0.9%
     Route: 040
  38. SODIUM CHLORIDE [Concomitant]
     Active Substance: SODIUM CHLORIDE
     Route: 042
  39. SODIUM CHLORIDE [Concomitant]
     Active Substance: SODIUM CHLORIDE
     Route: 042
  40. SODIUM CHLORIDE [Concomitant]
     Active Substance: SODIUM CHLORIDE
     Route: 042
  41. SODIUM CHLORIDE [Concomitant]
     Active Substance: SODIUM CHLORIDE
     Dosage: 100 ML/HR
     Route: 042
  42. AMBIEN [Concomitant]
     Active Substance: ZOLPIDEM TARTRATE
     Route: 048
  43. CIPRO [Concomitant]
     Active Substance: CIPROFLOXACIN HYDROCHLORIDE
  44. NEULASTA [Concomitant]
     Active Substance: PEGFILGRASTIM

REACTIONS (8)
  - Malaise [Unknown]
  - Liver function test increased [Recovered/Resolved]
  - Febrile neutropenia [Recovered/Resolved]
  - Diarrhoea [Recovered/Resolved]
  - Diarrhoea [Unknown]
  - Febrile neutropenia [Unknown]
  - Fatigue [Unknown]
  - Febrile neutropenia [Recovered/Resolved]

NARRATIVE: CASE EVENT DATE: 20170430
